FAERS Safety Report 22656489 (Version 9)
Quarter: 2024Q2

REPORT INFORMATION
  Report Type: Report from Study
  Country: FR (occurrence: FR)
  Receive Date: 20230629
  Receipt Date: 20240606
  Transmission Date: 20240717
  Serious: Yes (Hospitalization, Other)
  Sender: FDA-Public Use
  Company Number: FR-002147023-NVSC2023FR098552

PATIENT
  Age: 73 Year
  Sex: Male
  Weight: 89 kg

DRUGS (5)
  1. PLUVICTO [Suspect]
     Active Substance: LUTETIUM LU-177 VIPIVOTIDE TETRAXETAN
     Indication: Hormone-refractory prostate cancer
     Dosage: 7216 MBQ, ONCE/SINGLE (1000 MBQ/ML, CYCLE 1)
     Route: 042
     Dates: start: 20230310, end: 20230310
  2. PLUVICTO [Suspect]
     Active Substance: LUTETIUM LU-177 VIPIVOTIDE TETRAXETAN
     Indication: Prostate cancer metastatic
     Dosage: 7239 MBQ, ONCE/SINGLE (CYCLE 2)
     Route: 065
     Dates: start: 20240104, end: 20240104
  3. PLUVICTO [Suspect]
     Active Substance: LUTETIUM LU-177 VIPIVOTIDE TETRAXETAN
     Dosage: 7144 MBQ, ONCE/SINGLE (CYCLE 3)
     Route: 065
     Dates: start: 20240216, end: 20240216
  4. PLUVICTO [Suspect]
     Active Substance: LUTETIUM LU-177 VIPIVOTIDE TETRAXETAN
     Dosage: 5822 MBQ, ONCE/SINGLE (CYCLE 4)
     Route: 065
     Dates: start: 20240329, end: 20240329
  5. PLUVICTO [Suspect]
     Active Substance: LUTETIUM LU-177 VIPIVOTIDE TETRAXETAN
     Dosage: 5872 MBQ, ONCE/SINGLE (CYCLE 5)
     Route: 065
     Dates: start: 20240506, end: 20240506

REACTIONS (9)
  - Spinal cord disorder [Recovering/Resolving]
  - Bacteraemia [Unknown]
  - Back pain [Unknown]
  - Metastases to spine [Unknown]
  - Sepsis [Recovering/Resolving]
  - Leukopenia [Recovered/Resolved]
  - Thrombocytopenia [Unknown]
  - Pain [Not Recovered/Not Resolved]
  - Blood alkaline phosphatase increased [Unknown]

NARRATIVE: CASE EVENT DATE: 20230401
